FAERS Safety Report 19735831 (Version 1)
Quarter: 2021Q3

REPORT INFORMATION
  Report Type: Spontaneous
  Country: US (occurrence: US)
  Receive Date: 20210823
  Receipt Date: 20210823
  Transmission Date: 20211014
  Serious: Yes (Other)
  Sender: FDA-Public Use
  Company Number: US-FRESENIUS MEDICAL CARE RENAL THERAPIES GROUP-FMC-2108-001312

PATIENT
  Age: 40 Year
  Sex: Male

DRUGS (3)
  1. DELFLEX WITH DEXTROSE 2.5% LOW MAGNESIUM LOW CALCIUM [Suspect]
     Active Substance: CALCIUM CHLORIDE\DEXTROSE\MAGNESIUM CHLORIDE\SODIUM CHLORIDE\SODIUM LACTATE
     Indication: END STAGE RENAL DISEASE
     Dosage: EXCHANGES 4, FILL VOLUME 2500 ML, LAST FILL VOLUME N/A, DAYTIME EXCHANGES N/A, DWELL TIME 1.5 HOURS.
     Route: 033
  2. DELFLEX WITH DEXTROSE 1.5% LOW MAGNESIUM LOW CALCIUM [Suspect]
     Active Substance: CALCIUM CHLORIDE\DEXTROSE\MAGNESIUM CHLORIDE\SODIUM CHLORIDE\SODIUM LACTATE
     Indication: END STAGE RENAL DISEASE
     Dosage: EXCHANGES 4, FILL VOLUME 2500 ML, LAST FILL VOLUME N/A, DAYTIME EXCHANGES N/A, DWELL TIME 1.5 HOURS.
     Route: 033
  3. DELFLEX WITH DEXTROSE 4.25% LOW MAGNESIUM LOW CALCIUM [Suspect]
     Active Substance: CALCIUM CHLORIDE\DEXTROSE\MAGNESIUM CHLORIDE\SODIUM CHLORIDE\SODIUM LACTATE
     Indication: END STAGE RENAL DISEASE
     Dosage: EXCHANGES 4, FILL VOLUME 2500 ML, LAST FILL VOLUME N/A, DAYTIME EXCHANGES N/A, DWELL TIME 1.5 HOURS.
     Route: 033

REACTIONS (1)
  - Peritonitis bacterial [Recovering/Resolving]
